FAERS Safety Report 14448197 (Version 1)
Quarter: 2018Q1

REPORT INFORMATION
  Report Type: Spontaneous
  Country: GB (occurrence: GB)
  Receive Date: 20180126
  Receipt Date: 20180126
  Transmission Date: 20180509
  Serious: Yes (Hospitalization)
  Sender: FDA-Public Use
  Company Number: GB-B.I. PHARMACEUTICALS,INC./RIDGEFIELD-2017-BI-066964

PATIENT
  Sex: Male

DRUGS (3)
  1. DOCETAXEL. [Concomitant]
     Active Substance: DOCETAXEL
     Indication: PRODUCT USED FOR UNKNOWN INDICATION
     Dosage: 60MG/M2
     Route: 065
  2. VARGATEF [Suspect]
     Active Substance: NINTEDANIB
     Indication: PRODUCT USED FOR UNKNOWN INDICATION
     Route: 065
  3. VARGATEF [Suspect]
     Active Substance: NINTEDANIB
     Route: 065

REACTIONS (8)
  - Oral pain [Unknown]
  - Transaminases increased [Unknown]
  - Stomatitis [Unknown]
  - Headache [Unknown]
  - Rash pruritic [Unknown]
  - Neutropenia [Unknown]
  - Disease progression [Unknown]
  - Neuropathy peripheral [Unknown]
